FAERS Safety Report 25233248 (Version 1)
Quarter: 2025Q2

REPORT INFORMATION
  Report Type: Report from Study
  Country: ZA (occurrence: ZA)
  Receive Date: 20250424
  Receipt Date: 20250424
  Transmission Date: 20250717
  Serious: Yes (Hospitalization, Other)
  Sender: ABBVIE
  Company Number: ZA-ABBVIE-6233031

PATIENT
  Age: 40 Year
  Sex: Male

DRUGS (1)
  1. HUMIRA [Suspect]
     Active Substance: ADALIMUMAB
     Indication: Crohn^s disease
     Dosage: FORM STRENGTH: 40 MG
     Route: 058
     Dates: start: 20190318

REACTIONS (5)
  - Hospitalisation [Unknown]
  - Ligament disorder [Recovered/Resolved]
  - Sepsis [Recovered/Resolved]
  - Scar [Unknown]
  - Joint injury [Unknown]

NARRATIVE: CASE EVENT DATE: 20230101
